FAERS Safety Report 8099050-6 (Version None)
Quarter: 2012Q1

REPORT INFORMATION
  Report Type: 
  Country: None (occurrence: None)
  Receive Date: 20120131
  Receipt Date: 20120124
  Transmission Date: 20120608
  Serious: Yes (Disabling)
  Sender: FDA-Public Use
  Company Number: NO-ABBOTT-12P-122-0897575-00

PATIENT
  Sex: Male

DRUGS (3)
  1. PANTOPRAZOLE [Concomitant]
     Indication: CROHN'S DISEASE
     Route: 048
  2. MESALAMINE [Concomitant]
     Indication: CROHN'S DISEASE
     Route: 048
  3. HUMIRA [Suspect]
     Indication: CROHN'S DISEASE
     Route: 058
     Dates: start: 20110308, end: 20110308

REACTIONS (7)
  - TREMOR [None]
  - MALAISE [None]
  - ASTHENIA [None]
  - DIZZINESS [None]
  - FATIGUE [None]
  - ARTHRALGIA [None]
  - MYALGIA [None]
